FAERS Safety Report 12522186 (Version 2)
Quarter: 2016Q3

REPORT INFORMATION
  Report Type: Report from Study
  Country: CA (occurrence: CA)
  Receive Date: 20160701
  Receipt Date: 20160725
  Transmission Date: 20161109
  Serious: Yes (Other)
  Sender: FDA-Public Use
  Company Number: CA-JNJFOC-20160625268

PATIENT
  Age: 45 Year
  Sex: Female
  Weight: 64.5 kg

DRUGS (3)
  1. IMURAN [Concomitant]
     Active Substance: AZATHIOPRINE
     Route: 048
     Dates: start: 20160627
  2. REMICADE [Suspect]
     Active Substance: INFLIXIMAB
     Indication: CROHN^S DISEASE
     Route: 042
  3. IMURAN [Concomitant]
     Active Substance: AZATHIOPRINE
     Route: 048

REACTIONS (3)
  - Abdominal pain [Unknown]
  - Oophorectomy [Recovering/Resolving]
  - Hernia [Recovering/Resolving]

NARRATIVE: CASE EVENT DATE: 20160609
